FAERS Safety Report 8964647 (Version 1)
Quarter: 2012Q4

REPORT INFORMATION
  Report Type: 
  Country: US (occurrence: US)
  Receive Date: 20121214
  Receipt Date: 20121214
  Transmission Date: 20130627
  Serious: Yes (Other)
  Sender: FDA-Public Use
  Company Number: US-ASTRAZENECA-2011SE54645

PATIENT
  Age: 78 Year
  Sex: Female

DRUGS (11)
  1. SYMBICORT PMDI [Suspect]
     Dosage: 80/4.5 MCG, 2 PUFFS BY MOUTH TWICE A DAY
     Route: 055
  2. LISINOPRIL [Suspect]
     Route: 048
  3. CYMBALTA [Concomitant]
     Route: 048
  4. DIGOXIN [Concomitant]
     Route: 048
  5. HYDROMORPHONE [Concomitant]
     Indication: PAIN
     Route: 048
  6. VERAPAMIL ER [Concomitant]
     Route: 048
  7. AMITRIPTYLINE HCL [Concomitant]
     Route: 048
  8. WARFARIN SODIUM [Concomitant]
     Dosage: ONE AND HALF TABLET ON FRIDAY THEN ONE TABLET ON SAT, SUN, MON, TUES, WED, THURS
     Route: 048
  9. METFORMIN HCL [Concomitant]
     Route: 048
  10. CHLORZOXAZONE [Concomitant]
     Indication: PAIN
     Route: 048
  11. CLINDAMYCIN HCL [Concomitant]
     Route: 048

REACTIONS (4)
  - Cerebrovascular accident [Unknown]
  - Balance disorder [Unknown]
  - Sensory loss [Unknown]
  - Arthritis [Unknown]
